FAERS Safety Report 8841294 (Version 1)
Quarter: 2012Q4

REPORT INFORMATION
  Report Type: 
  Country: US (occurrence: US)
  Receive Date: 20121015
  Receipt Date: 20121015
  Transmission Date: 20130627
  Serious: No
  Sender: FDA-Public Use
  Company Number: US-009507513-1209USA010618

PATIENT
  Sex: Female

DRUGS (2)
  1. IMPLANON [Suspect]
     Dosage: UNK
     Dates: start: 2012
  2. SYNTHROID [Concomitant]

REACTIONS (3)
  - Breast swelling [Unknown]
  - Alopecia [Unknown]
  - Medical device complication [Unknown]
